FAERS Safety Report 9257296 (Version 1)
Quarter: 2013Q1

REPORT INFORMATION
  Report Type: Spontaneous
  Country: US (occurrence: None)
  Receive Date: 20121212
  Receipt Date: 20121212
  Transmission Date: 20140127
  Serious: No
  Sender: FDA-Public Use
  Company Number: 1208USA008288

PATIENT
  Age: 67 Year
  Sex: Female

DRUGS (3)
  1. REBETOL [Suspect]
     Indication: HEPATITIS C
     Dates: start: 20120301
  2. VICTRELIS [Suspect]
     Indication: HEPATITIS C
     Dates: start: 20120301
  3. PEGASYS ( PEGINTERFERON ALFA-2A) [Concomitant]

REACTIONS (3)
  - Red blood cell count decreased [None]
  - Alopecia [None]
  - Hair texture abnormal [None]
